FAERS Safety Report 4572955-6 (Version None)
Quarter: 2005Q1

REPORT INFORMATION
  Report Type: 
  Country: None (occurrence: None)
  Receive Date: 20050203
  Receipt Date: 20050127
  Transmission Date: 20050727
  Serious: Yes (Hospitalization)
  Sender: FDA-Public Use
  Company Number: 200410576BYL

PATIENT
  Age: 53 Year
  Sex: Male
  Weight: 63 kg

DRUGS (18)
  1. GLUCOBAY [Suspect]
     Indication: DIABETES MELLITUS
     Dosage: 50 MG, BID, ORAL
     Route: 048
     Dates: start: 20040822, end: 20041008
  2. PREDNISOLONE [Suspect]
     Indication: NEPHROTIC SYNDROME
     Dosage: 40 MG, TOTAL DAILY, ORAL
     Route: 048
     Dates: start: 20040813
  3. PREDNISOLONE [Suspect]
     Indication: NEPHROTIC SYNDROME
     Dosage: 20 MG, TOTAL DAILY, ORAL
     Route: 048
  4. RABEPRAZOLE SODIUM [Concomitant]
  5. MUCOSTA [Concomitant]
  6. CALBLOCK [Concomitant]
  7. ACECOL [Concomitant]
  8. TORSEMIDE [Concomitant]
  9. LENDORMIN [Concomitant]
  10. HALCION [Concomitant]
  11. CARDENALIN [Concomitant]
  12. SOLANAX [Concomitant]
  13. MEVAN [Concomitant]
  14. PERSANTIN-L [Concomitant]
  15. MYSLEE [Concomitant]
  16. EURODIN [Concomitant]
  17. RIZE [Concomitant]
  18. ASPARA K [Concomitant]

REACTIONS (1)
  - PNEUMATOSIS CYSTOIDES INTESTINALIS [None]
